FAERS Safety Report 25979464 (Version 1)
Quarter: 2025Q4

REPORT INFORMATION
  Report Type: Report from Study
  Country: EU (occurrence: EU)
  Receive Date: 20251030
  Receipt Date: 20251030
  Transmission Date: 20260117
  Serious: Yes (Hospitalization)
  Sender: MDD OPERATIONS
  Company Number: EU-MDD US Operations-MDD202510-004425

PATIENT
  Age: 74 Year
  Sex: Female

DRUGS (1)
  1. APOMORPHINE [Suspect]
     Active Substance: APOMORPHINE
     Indication: Parkinson^s disease
     Dosage: STRENGTH: 5MG/ML
     Route: 058

REACTIONS (2)
  - Anaemia [Unknown]
  - Blood iron decreased [Unknown]

NARRATIVE: CASE EVENT DATE: 20251015
